FAERS Safety Report 9311984 (Version 2)
Quarter: 2013Q2

REPORT INFORMATION
  Report Type: Report from Study
  Country: JP (occurrence: JP)
  Receive Date: 20130528
  Receipt Date: 20130529
  Transmission Date: 20140414
  Serious: Yes (Other)
  Sender: FDA-Public Use
  Company Number: JP-PFIZER INC-2013160988

PATIENT
  Sex: 0
  Weight: 1.78 kg

DRUGS (1)
  1. TENORMIN [Suspect]
     Indication: ARRHYTHMIA
     Dosage: 50 MG, DAILY
     Route: 064

REACTIONS (7)
  - Maternal exposure during pregnancy [Unknown]
  - Premature baby [Unknown]
  - Foetal distress syndrome [Unknown]
  - Foetal growth restriction [Unknown]
  - Long QT syndrome [Unknown]
  - Hypoglycaemia neonatal [Unknown]
  - Hyperbilirubinaemia neonatal [Unknown]
